FAERS Safety Report 6580677-5 (Version None)
Quarter: 2010Q1

REPORT INFORMATION
  Report Type: 
  Country: None (occurrence: None)
  Receive Date: 20100212
  Receipt Date: 20100203
  Transmission Date: 20100710
  Serious: Yes (Other)
  Sender: FDA-Public Use
  Company Number: BR-ABBOTT-10P-020-0624251-00

PATIENT
  Sex: Female
  Weight: 70 kg

DRUGS (9)
  1. HUMIRA [Suspect]
     Indication: DRUG USE FOR UNKNOWN INDICATION
     Route: 058
     Dates: start: 20080101
  2. HUMIRA [Suspect]
     Dates: end: 20090801
  3. HUMIRA [Suspect]
     Dates: start: 20091001
  4. METHOTREXATE [Concomitant]
     Indication: RHEUMATOID ARTHRITIS
     Route: 048
     Dates: start: 20060101
  5. CHLOROQUINE PHOSPHATE [Concomitant]
     Indication: RHEUMATOID ARTHRITIS
     Route: 048
     Dates: start: 20060101
  6. CORTICOID [Concomitant]
     Indication: PAIN
     Route: 048
     Dates: start: 20060101
  7. MELOXICAM [Concomitant]
     Indication: PAIN
     Route: 048
     Dates: start: 20060101
  8. TYLEX [Concomitant]
     Indication: PAIN
     Route: 048
     Dates: start: 20060101
  9. OMEPRAZOLE [Concomitant]
     Indication: GASTRIC DISORDER
     Route: 048

REACTIONS (10)
  - ANAEMIA [None]
  - ARTHRALGIA [None]
  - BLOOD CHOLESTEROL INCREASED [None]
  - FATIGUE [None]
  - INSOMNIA [None]
  - INTERVERTEBRAL DISC PROTRUSION [None]
  - MALAISE [None]
  - MEDICAL DEVICE COMPLICATION [None]
  - SCIATICA [None]
  - SPINAL DECOMPRESSION [None]
